FAERS Safety Report 4305754-0 (Version None)
Quarter: 2004Q1

REPORT INFORMATION
  Report Type: 
  Country: None (occurrence: None)
  Receive Date: 20040225
  Receipt Date: 20040213
  Transmission Date: 20041129
  Serious: Yes (Other)
  Sender: FDA-Public Use
  Company Number: NSADSS2003002721

PATIENT
  Age: 72 Year
  Sex: Female
  Weight: 125.5 kg

DRUGS (12)
  1. REMICADE [Suspect]
     Indication: RHEUMATOID ARTHRITIS
     Dosage: 500 MG, 1 IN 1 AS NECESSARY, INTRAVENOUS DRIP
     Route: 041
     Dates: start: 20030107, end: 20030107
  2. VIOXX [Concomitant]
  3. ULTRAM (TABLETS) TRAMADOL HYDROCHLORIDE TABLETS [Concomitant]
  4. SYNTHROID (LEVETHYROXINE SODIUM) [Concomitant]
  5. PREDNISONE [Concomitant]
  6. VICODIN [Concomitant]
  7. LACRI-LUBE (LACRI-LUBE) [Concomitant]
  8. ISOPTO TEARS (ISOPTO TEARS) [Concomitant]
  9. FOLIC ACID [Concomitant]
  10. AREDIA [Concomitant]
  11. ARAVA [Concomitant]
  12. ACTONEL [Concomitant]

REACTIONS (5)
  - BREAST CANCER METASTATIC [None]
  - IMPAIRED HEALING [None]
  - LACERATION [None]
  - OSTEOPOROSIS [None]
  - RASH [None]
